FAERS Safety Report 16258088 (Version 1)
Quarter: 2019Q2

REPORT INFORMATION
  Report Type: Spontaneous
  Country: US (occurrence: US)
  Receive Date: 20190430
  Receipt Date: 20190430
  Transmission Date: 20190711
  Serious: Yes (Other)
  Sender: FDA-Public Use
  Company Number: US-GLAXOSMITHKLINE-US2019075829

PATIENT
  Sex: Female

DRUGS (1)
  1. TRANSDERM SCOP [Suspect]
     Active Substance: SCOPOLAMINE
     Indication: PRODUCT USED FOR UNKNOWN INDICATION
     Dosage: UNK

REACTIONS (8)
  - Rash [Unknown]
  - Drug dependence [Unknown]
  - Vomiting [Unknown]
  - Weight decreased [Unknown]
  - Psychiatric symptom [Unknown]
  - Adverse drug reaction [Unknown]
  - Hospitalisation [Unknown]
  - Amnesia [Unknown]
